FAERS Safety Report 4589337-3 (Version None)
Quarter: 2005Q1

REPORT INFORMATION
  Report Type: 
  Country: None (occurrence: None)
  Receive Date: 20050216
  Receipt Date: 20050207
  Transmission Date: 20050727
  Serious: Yes (Other)
  Sender: FDA-Public Use
  Company Number: 2005-BP-01829RO

PATIENT
  Age: 74 Year
  Sex: Female

DRUGS (2)
  1. LEUCOVORIN CALCIUM [Suspect]
     Indication: COLON CANCER
     Dosage: 75 MG/DAY, PO
     Route: 048
     Dates: start: 20040716, end: 20040818
  2. UFT [Suspect]
     Indication: COLON CANCER
     Dosage: 4 CAPSULES/DAY, PO
     Route: 048
     Dates: start: 20040716, end: 20040818

REACTIONS (1)
  - STOMATITIS [None]
